FAERS Safety Report 12762915 (Version 1)
Quarter: 2016Q3

REPORT INFORMATION
  Report Type: Spontaneous
  Country: US (occurrence: US)
  Receive Date: 20160915
  Receipt Date: 20160915
  Transmission Date: 20161109
  Serious: No
  Sender: FDA-Public Use
  Company Number: None

PATIENT
  Sex: Male

DRUGS (1)
  1. SUTENT [Suspect]
     Active Substance: SUNITINIB MALATE
     Indication: NEUROENDOCRINE TUMOUR
     Route: 048
     Dates: start: 20160720

REACTIONS (6)
  - Abdominal pain [None]
  - Dysgeusia [None]
  - Fatigue [None]
  - Stomatitis [None]
  - Faeces discoloured [None]
  - Blood pressure increased [None]
